FAERS Safety Report 16404242 (Version 1)
Quarter: 2019Q2

REPORT INFORMATION
  Report Type: Spontaneous
  Country: SI (occurrence: SI)
  Receive Date: 20190607
  Receipt Date: 20190607
  Transmission Date: 20190711
  Serious: Yes (Other)
  Sender: FDA-Public Use
  Company Number: SI-B.I. PHARMACEUTICALS,INC./RIDGEFIELD-2019-BI-024730

PATIENT
  Age: 66 Year
  Sex: Male

DRUGS (1)
  1. PRAXBIND [Suspect]
     Active Substance: IDARUCIZUMAB
     Indication: PROCOAGULANT THERAPY
     Route: 065

REACTIONS (3)
  - Pulmonary embolism [Recovered/Resolved]
  - Post procedural complication [Recovered/Resolved]
  - Traumatic lung injury [Recovered/Resolved]
